FAERS Safety Report 18824761 (Version 1)
Quarter: 2021Q1

REPORT INFORMATION
  Report Type: Spontaneous
  Country: US (occurrence: US)
  Receive Date: 20210201
  Receipt Date: 20210201
  Transmission Date: 20210419
  Serious: No
  Sender: FDA-Public Use
  Company Number: US-ABBVIE-20K-163-3309393-00

PATIENT
  Age: 36 Year
  Sex: Female
  Weight: 106.69 kg

DRUGS (2)
  1. PREDNISONE. [Concomitant]
     Active Substance: PREDNISONE
     Indication: UVEITIS
  2. HUMIRA [Suspect]
     Active Substance: ADALIMUMAB
     Indication: UVEITIS
     Route: 058
     Dates: start: 20191209

REACTIONS (5)
  - Injection site pruritus [Not Recovered/Not Resolved]
  - Incorrect dose administered [Unknown]
  - Injection site pruritus [Recovered/Resolved]
  - Injection site rash [Not Recovered/Not Resolved]
  - Device issue [Unknown]

NARRATIVE: CASE EVENT DATE: 20200106
